FAERS Safety Report 5599203-2 (Version None)
Quarter: 2008Q1

REPORT INFORMATION
  Report Type: 
  Country: None (occurrence: None)
  Receive Date: 20080122
  Receipt Date: 20071126
  Transmission Date: 20080703
  Serious: Yes (Life-Threatening, Other)
  Sender: FDA-Public Use
  Company Number: US-MERCK-0504USA01669

PATIENT
  Sex: Male
  Weight: 70 kg

DRUGS (1)
  1. VYTORIN [Suspect]
     Indication: BLOOD CHOLESTEROL INCREASED
     Route: 048

REACTIONS (6)
  - C-REACTIVE PROTEIN INCREASED [None]
  - HEPATITIS [None]
  - LABORATORY TEST ABNORMAL [None]
  - MYALGIA [None]
  - POLYMYOSITIS [None]
  - RHABDOMYOLYSIS [None]
